FAERS Safety Report 10038429 (Version 1)
Quarter: 2014Q1

REPORT INFORMATION
  Report Type: Spontaneous
  Country: US (occurrence: None)
  Receive Date: 20140306
  Receipt Date: 20140306
  Transmission Date: 20141002
  Serious: Yes (Hospitalization, Other)
  Sender: FDA-Public Use
  Company Number: 163-21880-13106390

PATIENT
  Age: 68 Year
  Sex: Female
  Weight: 91.2 kg

DRUGS (13)
  1. REVLIMID [Suspect]
     Indication: PLASMA CELL MYELOMA
     Dosage: 5 MG, 1 IN 1 D, PO
     Route: 048
     Dates: start: 20100330
  2. TYLENOL (PARACETAMOL) (UNKNOWN) [Concomitant]
  3. ADVIL (IBUPROFEN) (UNKNOWN) [Concomitant]
  4. PERCOCET (OXYCOCET) (UNKNOWN) [Concomitant]
  5. SINGULAIR (MONTELUKAST SODIUM) (TABLETS) [Concomitant]
  6. PRISTIQ (DESVENLAFAXINSUCCINATE) (TABLETS) [Concomitant]
  7. TRICOR (FENOFIBRATE) (TABLETS) [Concomitant]
  8. SYNTHROID (LEVOTHYROXINE SODIUM) (TABLETS) [Concomitant]
  9. AVAPRO (IRBESARTAN) (TABLETS) [Concomitant]
  10. ASPIRIN (ACETYLSALICYLIC ACID) (CHEWABLE TABLET) [Concomitant]
  11. OMEPRAZOLE DR (OMEPRAZOLE) (TABLETS) [Concomitant]
  12. TEMAZEPAM (TEMAZEPAM) (CAPSULES) [Concomitant]
  13. VITAMIN B12 (CYANOCOBALAMIN) (UNKNOWN) [Concomitant]

REACTIONS (3)
  - Nasopharyngitis [None]
  - Bronchitis [None]
  - Fatigue [None]
